FAERS Safety Report 16684857 (Version 1)
Quarter: 2019Q3

REPORT INFORMATION
  Report Type: Spontaneous
  Country: GB (occurrence: GB)
  Receive Date: 20190808
  Receipt Date: 20190808
  Transmission Date: 20191004
  Serious: Yes (Disabling, Other)
  Sender: FDA-Public Use
  Company Number: GB-MYLANLABS-2019M1074104

PATIENT
  Age: 53 Year
  Sex: Female
  Weight: 141 kg

DRUGS (10)
  1. LANSOPRAZOLE. [Concomitant]
     Active Substance: LANSOPRAZOLE
     Dosage: MORNING.
     Dates: start: 20181126
  2. COCODAMOL [Concomitant]
     Active Substance: ACETAMINOPHEN\CODEINE PHOSPHATE
     Dosage: 30MG/500MG . 1-2 UP TO 4 TIMES DAILY.
     Dates: start: 20190108
  3. DIAZEPAM. [Concomitant]
     Active Substance: DIAZEPAM
     Dosage: 1 UP TO 4 TIMES A DAY.
     Dates: start: 20181212
  4. INDAPAMIDE. [Suspect]
     Active Substance: INDAPAMIDE
     Indication: DIURETIC THERAPY
     Dosage: 1.5 MILLIGRAM
     Route: 048
  5. FLUCLOXACILLIN [Concomitant]
     Active Substance: FLUCLOXACILLIN
     Dosage: 2000 MILLIGRAM, QD
     Dates: start: 20190108
  6. NAPROXEN. [Concomitant]
     Active Substance: NAPROXEN
     Dosage: 500 MILLIGRAM, QD
     Dates: start: 20181218
  7. ORAMORPH [Concomitant]
     Active Substance: MORPHINE SULFATE
     Dosage: UNK UNK, PRN
     Route: 048
     Dates: start: 20181204
  8. MORPHGESIC [Concomitant]
     Active Substance: MORPHINE SULFATE
     Dosage: 60 MILLIGRAM, QD
     Dates: start: 20181218
  9. RAMIPRIL. [Concomitant]
     Active Substance: RAMIPRIL
     Dosage: 10 MILLIGRAM, QD
     Dates: start: 20181126
  10. BISACODYL. [Concomitant]
     Active Substance: BISACODYL
     Dosage: BEFORE BEDTIME.
     Dates: start: 20181218

REACTIONS (3)
  - Gouty arthritis [Recovered/Resolved]
  - Cellulitis [Unknown]
  - Abscess limb [Unknown]

NARRATIVE: CASE EVENT DATE: 20190108
